FAERS Safety Report 5202776-2 (Version None)
Quarter: 2007Q1

REPORT INFORMATION
  Report Type: 
  Country: None (occurrence: None)
  Receive Date: 20070109
  Receipt Date: 20061227
  Transmission Date: 20070707
  Serious: Yes (Hospitalization)
  Sender: FDA-Public Use
  Company Number: US-SHR-US-2006-035709

PATIENT
  Age: 62 Year
  Sex: Female
  Weight: 90.703 kg

DRUGS (19)
  1. BETASERON [Suspect]
     Indication: RELAPSING-REMITTING MULTIPLE SCLEROSIS
     Dosage: 9.6 MIU, EVERY 2D
     Route: 058
  2. BETASERON [Suspect]
     Dosage: 8 MIU, EVERY 2D
     Route: 058
     Dates: start: 19910101
  3. CYLATAZOL [Concomitant]
     Dosage: 100 MG, UNK
  4. HYDROXYZINE [Concomitant]
     Dosage: 25 MG, UNK
  5. TREMERIN [Concomitant]
     Dosage: .625 MG, UNK
  6. MEDROXYPROGESTERONE [Concomitant]
     Dosage: 2.5 MG, UNK
  7. SPIRONOLACTONE [Concomitant]
     Dosage: 25 MG, UNK
  8. LISINOPRIL [Concomitant]
     Dosage: 5 MG, UNK
  9. GLIPIZIDE [Concomitant]
     Dosage: 5 MG, UNK
  10. METFORMIN HCL [Concomitant]
     Dosage: 500 MG, UNK
  11. AVANDIA [Concomitant]
     Dosage: 8 MG, UNK
  12. LIPITOR [Concomitant]
     Dosage: 10 MG, UNK
  13. METOPROLOL SUCCINATE [Concomitant]
     Dosage: 50 MG, UNK
  14. WARFARIN SODIUM [Concomitant]
     Dosage: 23 MG, UNK
  15. SKELAXIN [Concomitant]
     Dosage: 800 MG, UNK
  16. PROTONIX [Concomitant]
  17. LYRICA [Concomitant]
     Dosage: 50 MG, UNK
  18. PERCOCET [Concomitant]
     Dosage: 10 MG, UNK
  19. ACETAMINOP. W/BUTALBITAL/CAFF./CODEINE PHOSP. [Concomitant]
     Dosage: 1-2 TABS C/4HRS
     Route: 048

REACTIONS (3)
  - ANAEMIA [None]
  - BLOOD GLUCOSE DECREASED [None]
  - POST PROCEDURAL COMPLICATION [None]
